FAERS Safety Report 19687131 (Version 1)
Quarter: 2021Q3

REPORT INFORMATION
  Report Type: Spontaneous
  Country: US (occurrence: US)
  Receive Date: 20210811
  Receipt Date: 20210811
  Transmission Date: 20211014
  Serious: Yes (Other)
  Sender: FDA-Public Use
  Company Number: US-ASTRAZENECA-2021A562696

PATIENT
  Age: 951 Month
  Sex: Male

DRUGS (2)
  1. XTANDI [Suspect]
     Active Substance: ENZALUTAMIDE
     Indication: PROSTATE CANCER
     Dosage: UNKNOWN
     Route: 048
     Dates: end: 202105
  2. LYNPARZA [Suspect]
     Active Substance: OLAPARIB
     Indication: PRODUCT USED FOR UNKNOWN INDICATION
     Dosage: UNKNOWN
     Route: 048

REACTIONS (10)
  - Decreased appetite [Not Recovered/Not Resolved]
  - Cancer pain [Recovering/Resolving]
  - Oxygen saturation decreased [Unknown]
  - Bone cancer [Recovering/Resolving]
  - Dyspnoea [Recovering/Resolving]
  - Asthenia [Not Recovered/Not Resolved]
  - Discouragement [Unknown]
  - Prostatic specific antigen increased [Unknown]
  - Weight decreased [Unknown]
  - Nocturia [Unknown]

NARRATIVE: CASE EVENT DATE: 202106
